FAERS Safety Report 23295567 (Version 3)
Quarter: 2024Q2

REPORT INFORMATION
  Report Type: Spontaneous
  Country: US (occurrence: US)
  Receive Date: 20231214
  Receipt Date: 20240523
  Transmission Date: 20240716
  Serious: Yes (Hospitalization, Other)
  Sender: FDA-Public Use
  Company Number: US-ALLERGAN-2228095US

PATIENT
  Sex: Male

DRUGS (6)
  1. REFRESH OPTIVE [Suspect]
     Active Substance: CARBOXYMETHYLCELLULOSE SODIUM\GLYCERIN
     Indication: Dry eye
     Dosage: ONE VIAL IN EACH EYE
     Route: 047
     Dates: start: 2013
  2. REFRESH OPTIVE [Suspect]
     Active Substance: CARBOXYMETHYLCELLULOSE SODIUM\GLYCERIN
     Indication: Dry eye
     Route: 047
  3. REFRESH OPTIVE [Suspect]
     Active Substance: CARBOXYMETHYLCELLULOSE SODIUM\GLYCERIN
     Indication: Dry eye
     Dosage: BOTH EYES
     Route: 047
  4. REFRESH OPTIVE [Suspect]
     Active Substance: CARBOXYMETHYLCELLULOSE SODIUM\GLYCERIN
     Indication: Dry eye
     Dosage: SEVERAL TIMES A DAY, STRENGTH: CMC 5MG/ML, GLYCERIN 9MG/ML
     Route: 047
  5. REFRESH OPTIVE [Suspect]
     Active Substance: CARBOXYMETHYLCELLULOSE SODIUM\GLYCERIN
     Indication: Dry eye
     Route: 047
     Dates: start: 1988, end: 2013
  6. REPATHA [Suspect]
     Active Substance: EVOLOCUMAB
     Indication: Blood cholesterol increased
     Route: 065

REACTIONS (34)
  - Pulmonary haemorrhage [Unknown]
  - Product quality issue [Not Recovered/Not Resolved]
  - Pneumonia [Unknown]
  - Eye irritation [Recovered/Resolved]
  - Movement disorder [Not Recovered/Not Resolved]
  - Pulmonary embolism [Unknown]
  - Coronary artery bypass [Unknown]
  - Drug ineffective [Not Recovered/Not Resolved]
  - Frustration tolerance decreased [Unknown]
  - Skin cancer [Unknown]
  - Pulmonary mass [Unknown]
  - Arthritis [Unknown]
  - Angiosarcoma [Unknown]
  - Renal disorder [Unknown]
  - Unevaluable event [Unknown]
  - Myocardial infarction [Recovered/Resolved]
  - Renal failure [Unknown]
  - Neuropathy peripheral [Unknown]
  - Eye abrasion [Unknown]
  - Blood cholesterol increased [Recovered/Resolved]
  - Salivary gland neoplasm [Unknown]
  - Grip strength decreased [Unknown]
  - Glucose tolerance impaired [Unknown]
  - Fatigue [Not Recovered/Not Resolved]
  - Dyspnoea [Unknown]
  - Prostate cancer [Unknown]
  - Asthenia [Not Recovered/Not Resolved]
  - Endometrial cancer [Unknown]
  - Hospitalisation [Unknown]
  - Neoplasm malignant [Unknown]
  - Eye disorder [Unknown]
  - Surgery [Unknown]
  - Expired product administered [Unknown]
  - Myocardial infarction [Unknown]

NARRATIVE: CASE EVENT DATE: 20050101
